FAERS Safety Report 8818608 (Version 1)
Quarter: 2012Q4

REPORT INFORMATION
  Report Type: Spontaneous
  Country: US (occurrence: None)
  Receive Date: 20121002
  Receipt Date: 20121002
  Transmission Date: 20130627
  Serious: Yes (Other)
  Sender: FDA-Public Use
  Company Number: B0834004A

PATIENT
  Age: 52 Year
  Sex: Female

DRUGS (2)
  1. FLOVENT [Suspect]
     Indication: CHRONIC OBSTRUCTIVE PULMONARY DISEASE
  2. RITONAVIR [Suspect]
     Indication: HIV INFECTION

REACTIONS (2)
  - Cushing^s syndrome [None]
  - Adrenal suppression [None]
